FAERS Safety Report 10046100 (Version 1)
Quarter: 2014Q1

REPORT INFORMATION
  Report Type: Spontaneous
  Country: US (occurrence: US)
  Receive Date: 20140331
  Receipt Date: 20140331
  Transmission Date: 20141002
  Serious: Yes (Other)
  Sender: FDA-Public Use
  Company Number: US-BIOGENIDEC-2014BI028104

PATIENT
  Age: 64 Year
  Sex: Female
  Weight: 98 kg

DRUGS (13)
  1. AVONEX [Suspect]
     Indication: MULTIPLE SCLEROSIS
     Route: 030
     Dates: start: 20010730, end: 20050130
  2. LYRICA [Concomitant]
     Indication: NEURALGIA
  3. TYLENOL XR [Concomitant]
  4. MORPHINE SULFATE [Concomitant]
     Indication: PAIN
     Route: 048
  5. KLONOPIN [Concomitant]
     Route: 048
  6. GABAPENTIN [Concomitant]
     Route: 048
  7. CYMBALTA [Concomitant]
     Route: 048
  8. LISINOPRIL [Concomitant]
     Route: 048
  9. SYNTHROID [Concomitant]
     Route: 048
  10. RITALIN [Concomitant]
     Route: 048
  11. REQUIP [Concomitant]
     Route: 048
  12. HORIZANT [Concomitant]
     Route: 048
  13. FIORICET [Concomitant]
     Route: 048

REACTIONS (6)
  - Neck surgery [Unknown]
  - Surgery [Unknown]
  - Knee operation [Unknown]
  - Hysterectomy [Unknown]
  - Knee arthroplasty [Unknown]
  - Cholecystectomy [Unknown]
